FAERS Safety Report 16043622 (Version 1)
Quarter: 2019Q1

REPORT INFORMATION
  Report Type: Spontaneous
  Country: FR (occurrence: FR)
  Receive Date: 20190306
  Receipt Date: 20190306
  Transmission Date: 20190418
  Serious: Yes (Hospitalization)
  Sender: FDA-Public Use
  Company Number: FR-TEVA-786134ROM

PATIENT
  Age: 75 Year
  Sex: Male
  Weight: 64 kg

DRUGS (3)
  1. FLUOROURACILE TEVA [Suspect]
     Active Substance: FLUOROURACIL
     Indication: COLON CANCER
     Dosage: 675 MILLIGRAM DAILY;
     Route: 042
     Dates: start: 20170602, end: 20170602
  2. LEVOFOLINATE DE CALCIUM WINTHROP [Concomitant]
     Active Substance: LEVOLEUCOVORIN CALCIUM
     Dosage: 334 MILLIGRAM DAILY;
     Route: 042
     Dates: start: 20170602, end: 20170602
  3. FLUOROURACILE TEVA [Suspect]
     Active Substance: FLUOROURACIL
     Dosage: 4000 MILLIGRAM DAILY;
     Route: 041
     Dates: start: 20170604, end: 20170606

REACTIONS (3)
  - Leukopenia [Not Recovered/Not Resolved]
  - Mucosal inflammation [Not Recovered/Not Resolved]
  - Neutropenia [Not Recovered/Not Resolved]

NARRATIVE: CASE EVENT DATE: 20170610
